FAERS Safety Report 8847807 (Version 1)
Quarter: 2012Q4

REPORT INFORMATION
  Report Type: 
  Country: GB (occurrence: GB)
  Receive Date: 20121018
  Receipt Date: 20121018
  Transmission Date: 20130627
  Serious: Yes (Other)
  Sender: FDA-Public Use
  Company Number: GB-ABBOTT-12P-167-0994344-00

PATIENT
  Age: 46 Year
  Sex: Male

DRUGS (2)
  1. HUMIRA [Suspect]
     Indication: CROHN^S DISEASE
     Dosage: Route of administration: 58
     Dates: start: 20120920, end: 20120920
  2. MESALAZINE [Concomitant]
     Indication: CROHN^S DISEASE
     Dosage: Route of administration:48
     Dates: start: 2008

REACTIONS (4)
  - Muscle spasms [Recovering/Resolving]
  - Activities of daily living impaired [Recovered/Resolved]
  - Diarrhoea [Recovering/Resolving]
  - Pyrexia [Recovering/Resolving]
